FAERS Safety Report 13399565 (Version 1)
Quarter: 2017Q2

REPORT INFORMATION
  Report Type: Spontaneous
  Country: US (occurrence: US)
  Receive Date: 20170403
  Receipt Date: 20170403
  Transmission Date: 20170830
  Serious: Yes (Hospitalization)
  Sender: FDA-Public Use
  Company Number: None

PATIENT
  Age: 22 Year
  Sex: Male
  Weight: 85.73 kg

DRUGS (5)
  1. ALBUTEROL. [Concomitant]
     Active Substance: ALBUTEROL
  2. LORATADINE. [Concomitant]
     Active Substance: LORATADINE
  3. IOPAMIDOL [Concomitant]
     Active Substance: IOPAMIDOL
  4. DULERA (MOMETASONE/FORMOTEROL) INHALER [Concomitant]
  5. MULTIHANCE [Suspect]
     Active Substance: GADOBENATE DIMEGLUMINE
     Indication: NUCLEAR MAGNETIC RESONANCE IMAGING
     Dosage: ?          OTHER FREQUENCY:ONCE;?
     Route: 042
     Dates: start: 20161229, end: 20161229

REACTIONS (4)
  - Contrast media allergy [None]
  - Dyspnoea [None]
  - Wheezing [None]
  - Flushing [None]

NARRATIVE: CASE EVENT DATE: 20161229
